FAERS Safety Report 24138581 (Version 1)
Quarter: 2024Q3

REPORT INFORMATION
  Report Type: Report from Study
  Country: CA (occurrence: CA)
  Receive Date: 20240725
  Receipt Date: 20240725
  Transmission Date: 20241017
  Serious: Yes (Other)
  Sender: APELLIS PHARMACEUTICALS
  Company Number: CA-BIOVITRUM-2024-CA-002756

PATIENT

DRUGS (4)
  1. PEGCETACOPLAN [Suspect]
     Active Substance: PEGCETACOPLAN
     Indication: Paroxysmal nocturnal haemoglobinuria
     Dosage: 1080 MG 1 VIAL TWICE WEEKLY ON DAYS 1 AND 4
     Route: 058
     Dates: start: 20240212
  2. IVIGLOB EX [Suspect]
     Active Substance: HUMAN IMMUNOGLOBULIN G
     Indication: Immune system disorder
  3. SOLIRIS [Concomitant]
     Active Substance: ECULIZUMAB
     Indication: Product used for unknown indication
  4. SOLIRIS [Concomitant]
     Active Substance: ECULIZUMAB

REACTIONS (17)
  - Infusion site pain [Unknown]
  - Feeling cold [Unknown]
  - Chills [Unknown]
  - Myalgia [Unknown]
  - Back pain [Unknown]
  - Nausea [Unknown]
  - Infusion site erythema [Unknown]
  - Fatigue [Unknown]
  - Diarrhoea [Unknown]
  - Haemoglobin abnormal [Unknown]
  - Platelet count abnormal [Unknown]
  - Sinusitis [Unknown]
  - Headache [Not Recovered/Not Resolved]
  - Skin irritation [Not Recovered/Not Resolved]
  - Gastrointestinal disorder [Not Recovered/Not Resolved]
  - Haemolysis [Unknown]
  - Cystitis [Unknown]

NARRATIVE: CASE EVENT DATE: 20240212
